FAERS Safety Report 7802292-5 (Version None)
Quarter: 2011Q4

REPORT INFORMATION
  Report Type: 
  Country: None (occurrence: None)
  Receive Date: 20111007
  Receipt Date: 20111003
  Transmission Date: 20120403
  Serious: Yes (Death, Life-Threatening, Other)
  Sender: FDA-Public Use
  Company Number: US-JNJFOC-20111002585

PATIENT
  Age: 54 Year
  Sex: Female

DRUGS (1)
  1. REOPRO [Suspect]
     Indication: PRODUCT USED FOR UNKNOWN INDICATION
     Dosage: INTRAVENOUS BOLUS
     Route: 042
     Dates: start: 20111001

REACTIONS (2)
  - CARDIAC ARREST [None]
  - DIABETIC KETOACIDOSIS [None]
